FAERS Safety Report 12899856 (Version 2)
Quarter: 2016Q4

REPORT INFORMATION
  Report Type: Spontaneous
  Country: FR (occurrence: FR)
  Receive Date: 20161101
  Receipt Date: 20161209
  Transmission Date: 20170207
  Serious: Yes (Death)
  Sender: FDA-Public Use
  Company Number: FR-PFIZER INC-2016495663

PATIENT
  Age: 73 Year
  Sex: Male

DRUGS (13)
  1. LANTUS [Concomitant]
     Active Substance: INSULIN GLARGINE
  2. INNOHEP [Concomitant]
     Active Substance: TINZAPARIN SODIUM
  3. BISOCE [Concomitant]
     Active Substance: BISOPROLOL
  4. RAMIPRIL. [Concomitant]
     Active Substance: RAMIPRIL
  5. STILNOX [Concomitant]
     Active Substance: ZOLPIDEM TARTRATE
  6. SIMVASTATINE [Concomitant]
     Active Substance: SIMVASTATIN
  7. CURASPON [Concomitant]
  8. LIPIODOL [Suspect]
     Active Substance: ETHIODIZED OIL
     Indication: HEPATOCELLULAR CARCINOMA
     Dosage: 10 MG/M2, SINGLE
     Route: 013
     Dates: start: 20160817
  9. IOMERON [Suspect]
     Active Substance: IOMEPROL
     Indication: ARTERIOGRAM LIVER
     Dosage: 250 ML, SINGLE
     Route: 013
     Dates: start: 20160817
  10. ADRIBLASTINE [Suspect]
     Active Substance: DOXORUBICIN
     Dosage: 10 MG, UNK
     Route: 013
     Dates: start: 20160817
  11. ADRIBLASTINE [Suspect]
     Active Substance: DOXORUBICIN
     Indication: HEPATOCELLULAR CARCINOMA
     Dosage: 70 MG/M2, SINGLE
     Route: 013
     Dates: start: 20160817
  12. ZYLORIC [Concomitant]
     Active Substance: ALLOPURINOL
  13. LASILIX /00032601/ [Concomitant]
     Active Substance: FUROSEMIDE

REACTIONS (3)
  - Acute pulmonary oedema [Fatal]
  - Pyrexia [Fatal]
  - Cardio-respiratory arrest [Fatal]

NARRATIVE: CASE EVENT DATE: 20160818
